FAERS Safety Report 13936982 (Version 1)
Quarter: 2017Q3

REPORT INFORMATION
  Report Type: Spontaneous
  Country: CA (occurrence: CA)
  Receive Date: 20170905
  Receipt Date: 20170905
  Transmission Date: 20171127
  Serious: Yes (Hospitalization)
  Sender: FDA-Public Use
  Company Number: CA-BAYER-2017-163935

PATIENT
  Age: 69 Year
  Sex: Male

DRUGS (1)
  1. RESTORALAX [Suspect]
     Active Substance: POLYETHYLENE GLYCOL 3350
     Dosage: 17 G, QD
     Route: 048
     Dates: start: 2017, end: 2017

REACTIONS (4)
  - Diarrhoea [Not Recovered/Not Resolved]
  - Dehydration [None]
  - Pyrexia [None]
  - Muscle spasms [None]

NARRATIVE: CASE EVENT DATE: 20170729
